FAERS Safety Report 7508627-5 (Version None)
Quarter: 2011Q2

REPORT INFORMATION
  Report Type: 
  Country: None (occurrence: None)
  Receive Date: 20110527
  Receipt Date: 20110322
  Transmission Date: 20111010
  Serious: No
  Sender: FDA-Public Use
  Company Number: A0920352A

PATIENT
  Age: 64 Year
  Sex: Female
  Weight: 89.4 kg

DRUGS (10)
  1. ARIMIDEX [Concomitant]
  2. TRACLEER [Concomitant]
  3. LASIX [Concomitant]
  4. POTASSIUM CHLORIDE [Concomitant]
  5. IRON SUPPLEMENT [Concomitant]
  6. SPIRIVA [Concomitant]
  7. DOCUSATE [Concomitant]
  8. PROVENTIL [Concomitant]
  9. FLOLAN [Suspect]
     Route: 065
     Dates: start: 20091203
  10. ASMANEX TWISTHALER [Concomitant]

REACTIONS (1)
  - UPPER RESPIRATORY TRACT INFECTION [None]
